FAERS Safety Report 5414147-4 (Version None)
Quarter: 2007Q3

REPORT INFORMATION
  Report Type: 
  Country: None (occurrence: None)
  Receive Date: 20070713
  Receipt Date: 20070516
  Transmission Date: 20080115
  Serious: Yes (Hospitalization, Other)
  Sender: FDA-Public Use
  Company Number: US-JNJFOC-20061101120

PATIENT
  Age: 40 Year
  Sex: Female
  Weight: 86.1834 kg

DRUGS (11)
  1. ORTHO EVRA [Suspect]
     Indication: CONTRACEPTION
     Dosage: TRANSDERMAL
     Route: 062
     Dates: start: 20041001, end: 20041101
  2. TIZANDINE (TIZANIDINE) [Concomitant]
  3. BUSPIRONE HCL [Concomitant]
  4. HYDROCHLOROQUINE (HYDROXYCHLOROQUINE) [Concomitant]
  5. PROTONIX [Concomitant]
  6. CLARITIN [Concomitant]
  7. ZOLOFT [Concomitant]
  8. PHENERGAN [Concomitant]
  9. NABUMETONE [Concomitant]
  10. TOPAMAX [Concomitant]
  11. CALCIUM WITH VITAMIN D (CALCIUM WITH VITAMIN D) [Concomitant]

REACTIONS (2)
  - LUNG INFILTRATION [None]
  - PULMONARY EMBOLISM [None]
